FAERS Safety Report 9552921 (Version 1)
Quarter: 2013Q3

REPORT INFORMATION
  Report Type: Spontaneous
  Country: US (occurrence: None)
  Receive Date: 20130724
  Receipt Date: 20130724
  Transmission Date: 20140515
  Serious: No
  Sender: FDA-Public Use
  Company Number: PHEH2012US015449

PATIENT
  Age: 75 Year
  Sex: Male

DRUGS (1)
  1. GLEEVEC (IMATINIB)(UNKNOWN) [Suspect]
     Indication: GASTROINTESTINAL STROMAL TUMOUR
     Dates: start: 200411, end: 201001

REACTIONS (2)
  - Neoplasm malignant [None]
  - Neoplasm progression [None]
